FAERS Safety Report 23133002 (Version 1)
Quarter: 2023Q4

REPORT INFORMATION
  Report Type: Other
  Country: US (occurrence: US)
  Receive Date: 20231101
  Receipt Date: 20231101
  Transmission Date: 20240110
  Serious: Yes (Hospitalization, Other)
  Sender: FDA-Public Use
  Company Number: US-Bion-012274

PATIENT
  Age: 22 Year

DRUGS (4)
  1. AMANTADINE HYDROCHLORIDE [Suspect]
     Active Substance: AMANTADINE HYDROCHLORIDE
     Indication: Post-traumatic headache
     Dates: start: 20220405
  2. DULOXETINE [Concomitant]
     Active Substance: DULOXETINE
     Indication: Post-traumatic headache
  3. BUPROPION [Concomitant]
     Active Substance: BUPROPION
     Indication: Post-traumatic headache
  4. GABAPENTIN [Concomitant]
     Active Substance: GABAPENTIN
     Indication: Post-traumatic headache

REACTIONS (1)
  - Serotonin syndrome [Recovered/Resolved]
